FAERS Safety Report 5563823-1 (Version None)
Quarter: 2007Q4

REPORT INFORMATION
  Report Type: 
  Country: None (occurrence: None)
  Receive Date: 20071217
  Receipt Date: 20070911
  Transmission Date: 20080405
  Serious: No
  Sender: FDA-Public Use
  Company Number: US-ASTRAZENECA-2007UW20471

PATIENT
  Age: 70 Year
  Sex: Female
  Weight: 68.9 kg

DRUGS (3)
  1. CRESTOR [Suspect]
     Indication: BLOOD CHOLESTEROL INCREASED
     Route: 048
     Dates: start: 20060901, end: 20070801
  2. LEXAPRO [Concomitant]
  3. XANAX [Concomitant]

REACTIONS (4)
  - BLOOD CREATINE PHOSPHOKINASE INCREASED [None]
  - FEELING HOT [None]
  - PAIN IN EXTREMITY [None]
  - SKIN DISORDER [None]
